FAERS Safety Report 4631054-5 (Version None)
Quarter: 2005Q2

REPORT INFORMATION
  Report Type: 
  Country: None (occurrence: None)
  Receive Date: 20050406
  Receipt Date: 20050323
  Transmission Date: 20051028
  Serious: Yes (Other)
  Sender: FDA-Public Use
  Company Number: US_0501110653

PATIENT
  Sex: Male

DRUGS (2)
  1. ZYPREXA [Suspect]
     Indication: DEPRESSION
     Dates: start: 19990601
  2. ZYPREXA [Suspect]
     Indication: SCHIZOPHRENIA
     Dates: start: 19990601

REACTIONS (2)
  - KETOACIDOSIS [None]
  - PANCREATITIS [None]
